FAERS Safety Report 6757808-7 (Version None)
Quarter: 2010Q2

REPORT INFORMATION
  Report Type: 
  Country: None (occurrence: None)
  Receive Date: 20100607
  Receipt Date: 20100524
  Transmission Date: 20101027
  Serious: Yes (Other)
  Sender: FDA-Public Use
  Company Number: PHEH2005US01797

PATIENT
  Sex: Male

DRUGS (24)
  1. AREDIA [Suspect]
     Indication: OSTEOPOROSIS
     Dosage: 90 MG, QMO
     Dates: start: 19970827, end: 20021010
  2. ZOMETA [Suspect]
     Indication: OSTEOPOROSIS
     Dosage: 4 MG, QMO
     Dates: start: 20021210, end: 20040923
  3. DURAGESIC-100 [Concomitant]
     Dosage: UNK, UNK
  4. OXYCONTIN [Concomitant]
     Dosage: UNK, UNK
  5. OXYCODONE [Concomitant]
     Dosage: UNK, UNK
  6. ALPRAZOLAM [Concomitant]
     Dosage: UNK, UNK
  7. DIAZEPAM [Concomitant]
     Dosage: UNK, UNK
  8. HYDROMORPHONE HCL [Concomitant]
     Dosage: UNK, UNK
  9. DIFLUCAN [Concomitant]
     Dosage: UNK, UNK
  10. ACETAMINOPHEN AND HYDROCODONE BITARTRATE [Concomitant]
     Dosage: UNK, UNK
  11. ROXICODONE [Concomitant]
     Dosage: UNK, UNK
  12. AMBIEN [Concomitant]
     Dosage: UNK, UNK
  13. CARISOPRODOL [Concomitant]
     Dosage: UNK, UNK
  14. CELEBREX [Concomitant]
     Dosage: UNK, UNK
  15. VIAGRA [Concomitant]
     Dosage: UNK, UNK
  16. NEURONTIN [Concomitant]
     Dosage: UNK, UNK
  17. PREDNISONE [Concomitant]
     Dosage: UNK, UNK
  18. FAMOTIDINE [Concomitant]
     Dosage: UNK, UNK
  19. FLUMADINE [Concomitant]
     Dosage: UNK, UNK
  20. LEVAQUIN [Concomitant]
     Dosage: UNK, UNK
  21. ANDROGEL [Concomitant]
     Dosage: UNK, UNK
  22. GUIATUSS A.C. [Concomitant]
     Dosage: UNK, UNK
  23. RIMANTADINE HYDROCHLORIDE [Concomitant]
     Dosage: UNK, UNK
  24. AVELOX [Concomitant]
     Dosage: UNK, UNK

REACTIONS (22)
  - ARTHRITIS [None]
  - BACK DISORDER [None]
  - BONE DISORDER [None]
  - CARDIOVASCULAR DISORDER [None]
  - DEBRIDEMENT [None]
  - DEEP VEIN THROMBOSIS [None]
  - DRY MOUTH [None]
  - ENDODONTIC PROCEDURE [None]
  - GINGIVAL BLEEDING [None]
  - IMPAIRED HEALING [None]
  - INFLUENZA [None]
  - JAW DISORDER [None]
  - JOINT CREPITATION [None]
  - ORAL PAIN [None]
  - OSTEONECROSIS OF JAW [None]
  - PAIN IN JAW [None]
  - PULMONARY EMBOLISM [None]
  - SENSITIVITY OF TEETH [None]
  - SOFT TISSUE DISORDER [None]
  - TOOTH DEPOSIT [None]
  - TOOTH EXTRACTION [None]
  - WOUND DEHISCENCE [None]
